FAERS Safety Report 5722655-1 (Version None)
Quarter: 2008Q2

REPORT INFORMATION
  Report Type: 
  Country: None (occurrence: None)
  Receive Date: 20080429
  Receipt Date: 20070815
  Transmission Date: 20081010
  Serious: No
  Sender: FDA-Public Use
  Company Number: US-ASTRAZENECA-2007UW19645

PATIENT
  Age: 43 Year
  Sex: Female
  Weight: 49.9 kg

DRUGS (1)
  1. NEXIUM [Suspect]
     Route: 048
     Dates: start: 20070810

REACTIONS (2)
  - COUGH [None]
  - DRY THROAT [None]
